FAERS Safety Report 7436912-4 (Version None)
Quarter: 2011Q2

REPORT INFORMATION
  Report Type: 
  Country: None (occurrence: None)
  Receive Date: 20110426
  Receipt Date: 20110425
  Transmission Date: 20111010
  Serious: No
  Sender: FDA-Public Use
  Company Number: US-PFIZER INC-2011088368

PATIENT
  Sex: Female

DRUGS (5)
  1. OMEPRAZOLE [Suspect]
     Dosage: UNK
  2. CYCLOBENZAPRINE [Suspect]
     Indication: MYALGIA
     Dosage: UNK
     Route: 048
  3. ADVIL LIQUI-GELS [Suspect]
     Dosage: UNK
  4. TRAMADOL HCL [Suspect]
     Dosage: UNK
  5. HYDROCHLOROTHIAZIDE [Suspect]
     Dosage: UNK

REACTIONS (2)
  - CHILLS [None]
  - TREMOR [None]
